FAERS Safety Report 9431134 (Version 2)
Quarter: 2013Q3

REPORT INFORMATION
  Report Type: Spontaneous
  Country: US (occurrence: US)
  Receive Date: 20130730
  Receipt Date: 20130820
  Transmission Date: 20140515
  Serious: Yes (Other)
  Sender: FDA-Public Use
  Company Number: US-PFIZER INC-2013218733

PATIENT
  Age: 92 Year
  Sex: Male

DRUGS (1)
  1. TOVIAZ [Suspect]
     Indication: HYPERTONIC BLADDER
     Dosage: UNK

REACTIONS (3)
  - Cerebrovascular accident [Unknown]
  - Dysgraphia [Unknown]
  - Drug effect incomplete [Unknown]
